FAERS Safety Report 8129966-3 (Version None)
Quarter: 2012Q1

REPORT INFORMATION
  Report Type: 
  Country: None (occurrence: None)
  Receive Date: 20120210
  Receipt Date: 20120201
  Transmission Date: 20120608
  Serious: Yes (Life-Threatening, Hospitalization, Other)
  Sender: FDA-Public Use
  Company Number: US-ABBOTT-11P-163-0852911-00

PATIENT
  Age: 15 Year
  Sex: Male
  Weight: 47.8 kg

DRUGS (28)
  1. IRON [Concomitant]
     Indication: PRODUCT USED FOR UNKNOWN INDICATION
     Dosage: 325 MG DAILY
  2. COTRIM [Concomitant]
     Indication: PRODUCT USED FOR UNKNOWN INDICATION
  3. INFLIXIMAB [Suspect]
     Indication: CROHN'S DISEASE
     Route: 042
     Dates: start: 20051103, end: 20090429
  4. CYTARABINE [Concomitant]
     Indication: PRODUCT USED FOR UNKNOWN INDICATION
  5. AUGMENTIN '125' [Concomitant]
     Indication: PRODUCT USED FOR UNKNOWN INDICATION
  6. CHOLECALCIFEROL [Concomitant]
     Indication: PRODUCT USED FOR UNKNOWN INDICATION
  7. FLUCONAZOLE [Concomitant]
     Indication: PRODUCT USED FOR UNKNOWN INDICATION
  8. NALBUPHINE [Concomitant]
     Indication: PRODUCT USED FOR UNKNOWN INDICATION
  9. OXYCODONE HCL [Concomitant]
     Indication: PRODUCT USED FOR UNKNOWN INDICATION
  10. CALCIUM CARBONATE [Concomitant]
     Indication: PRODUCT USED FOR UNKNOWN INDICATION
  11. FOLIC ACID [Concomitant]
     Indication: PRODUCT USED FOR UNKNOWN INDICATION
  12. ZOFRAN [Concomitant]
     Indication: PRODUCT USED FOR UNKNOWN INDICATION
  13. OMEPRAZOLE [Concomitant]
     Indication: PRODUCT USED FOR UNKNOWN INDICATION
  14. ALUMINUM HYDROXIDE [Concomitant]
     Indication: PRODUCT USED FOR UNKNOWN INDICATION
  15. HUMIRA [Suspect]
     Indication: CROHN'S DISEASE
     Dates: start: 20090512, end: 20100324
  16. PEPTAMEN [Concomitant]
     Indication: PRODUCT USED FOR UNKNOWN INDICATION
  17. IMODIUM [Concomitant]
     Indication: PRODUCT USED FOR UNKNOWN INDICATION
  18. SCOPOLAMINE [Concomitant]
     Indication: PRODUCT USED FOR UNKNOWN INDICATION
     Dosage: PATCH
  19. METHOTREXATE [Concomitant]
     Indication: CROHN'S DISEASE
     Dates: start: 20070401, end: 20100301
  20. MORPHINE [Concomitant]
     Indication: PRODUCT USED FOR UNKNOWN INDICATION
  21. VANCOMYCIN [Concomitant]
     Indication: PRODUCT USED FOR UNKNOWN INDICATION
  22. CHLORHEXIDINE GLUCONATE [Concomitant]
     Indication: PRODUCT USED FOR UNKNOWN INDICATION
     Dosage: ORAL RINSE
     Route: 048
  23. ANTIBIOTICS [Concomitant]
     Indication: INFLAMMATORY BOWEL DISEASE
  24. MIRALAX [Concomitant]
     Indication: PRODUCT USED FOR UNKNOWN INDICATION
  25. ZANTAC [Concomitant]
     Indication: PRODUCT USED FOR UNKNOWN INDICATION
  26. ZOSYN [Concomitant]
     Indication: PRODUCT USED FOR UNKNOWN INDICATION
  27. RIFAXIMIN [Concomitant]
     Indication: PRODUCT USED FOR UNKNOWN INDICATION
  28. ATIVAN [Concomitant]
     Indication: PRODUCT USED FOR UNKNOWN INDICATION

REACTIONS (33)
  - MUCOSAL INFLAMMATION [None]
  - HEADACHE [None]
  - ABDOMINAL INFECTION [None]
  - PYREXIA [None]
  - SINUSITIS [None]
  - MYELOID LEUKAEMIA [None]
  - EJECTION FRACTION ABNORMAL [None]
  - FLATULENCE [None]
  - HOSPITALISATION [None]
  - HYPOTENSION [None]
  - CROHN'S DISEASE [None]
  - TRANSFUSION REACTION [None]
  - SPLEEN DISORDER [None]
  - ABDOMINAL PAIN [None]
  - VIRAL INFECTION [None]
  - ACUTE MONOCYTIC LEUKAEMIA [None]
  - SHOCK HAEMORRHAGIC [None]
  - MULTI-ORGAN FAILURE [None]
  - ASCITES [None]
  - HAEMATOCHEZIA [None]
  - VOMITING [None]
  - PRURITUS [None]
  - DIARRHOEA [None]
  - DECREASED APPETITE [None]
  - SPLENOMEGALY [None]
  - HYPERPHOSPHATAEMIA [None]
  - SEPTIC SHOCK [None]
  - PANCYTOPENIA [None]
  - PROCEDURAL COMPLICATION [None]
  - HAEMOGLOBIN DECREASED [None]
  - FEEDING DISORDER [None]
  - WHITE BLOOD CELL COUNT INCREASED [None]
  - COLONIC STENOSIS [None]
